FAERS Safety Report 6252008-1 (Version None)
Quarter: 2009Q2

REPORT INFORMATION
  Report Type: 
  Country: None (occurrence: None)
  Receive Date: 20090630
  Receipt Date: 20070212
  Transmission Date: 20091009
  Serious: Yes (Hospitalization)
  Sender: FDA-Public Use
  Company Number: US-ROCHE-638541

PATIENT
  Sex: Female

DRUGS (22)
  1. ENFUVIRTIDE [Suspect]
     Route: 065
     Dates: start: 20050930, end: 20070511
  2. ENFUVIRTIDE [Suspect]
     Route: 065
     Dates: start: 20070822, end: 20080101
  3. COMBIVIR [Concomitant]
     Dosage: FREQUENCY: QD.
     Dates: start: 20040129, end: 20070511
  4. COMBIVIR [Concomitant]
     Dosage: FREQUENCY: QD.
     Dates: start: 20070822, end: 20080101
  5. VIRACEPT [Concomitant]
     Dates: start: 20040701, end: 20070511
  6. VIRACEPT [Concomitant]
     Dates: start: 20070822, end: 20080101
  7. VIREAD [Concomitant]
     Dosage: FREQUENCY: QD.
     Dates: start: 20050930, end: 20070511
  8. VIREAD [Concomitant]
     Dosage: FREQUENCY: QD.
     Dates: start: 20070822, end: 20080101
  9. ISENTRESS [Concomitant]
     Dates: start: 20080402, end: 20080814
  10. LEXIVA [Concomitant]
     Dosage: FREQUENCY: QD.
     Dates: start: 20080402, end: 20080814
  11. NORVIR [Concomitant]
     Dosage: FREQUENCY: QD.
     Dates: start: 20080402, end: 20080814
  12. TRUVADA [Concomitant]
     Dosage: FREQUENCY: QD.
     Dates: start: 20080402, end: 20080814
  13. DIFLUCAN [Concomitant]
     Dosage: FREQUENCY: QD.
     Dates: start: 20050930, end: 20061227
  14. DIFLUCAN [Concomitant]
     Dosage: FREQUENCY: QD.
     Dates: start: 20080405, end: 20080814
  15. MEPRON [Concomitant]
     Dosage: FREQUENCY: QD.
     Dates: start: 20050930, end: 20080814
  16. ZITHROMAX [Concomitant]
     Dosage: FREQUENCY: QD.
     Dates: start: 20051102, end: 20061227
  17. ZITHROMAX [Concomitant]
     Dates: start: 20061227, end: 20080305
  18. LEVAQUIN [Concomitant]
     Dosage: FREQUENCY: ONCE.
     Dates: start: 20070511, end: 20070511
  19. LEVAQUIN [Concomitant]
     Dosage: FREQUENCY: QD.
     Dates: start: 20070720, end: 20070727
  20. LEVAQUIN [Concomitant]
     Dosage: FREQUENCY: QD.
     Dates: start: 20070815, end: 20070821
  21. LEVAQUIN [Concomitant]
     Dosage: FREQUENCY: QD.
     Dates: start: 20070822, end: 20070828
  22. VANCOMYCIN [Concomitant]
     Dosage: FREQUENCY: ONCE.
     Dates: start: 20070511, end: 20070511

REACTIONS (2)
  - DEEP VEIN THROMBOSIS [None]
  - PANCREATITIS ACUTE [None]
